FAERS Safety Report 7846083-8 (Version None)
Quarter: 2011Q4

REPORT INFORMATION
  Report Type: 
  Country: None (occurrence: None)
  Receive Date: 20111025
  Receipt Date: 20111018
  Transmission Date: 20120403
  Serious: Yes (Other)
  Sender: FDA-Public Use
  Company Number: IT-AMGEN-ITASP2011053945

PATIENT
  Age: 76 Year
  Sex: Female

DRUGS (2)
  1. VECTIBIX [Suspect]
     Indication: COLON CANCER
     Dosage: 396 MG, UNK
     Route: 042
     Dates: start: 20110311, end: 20110422
  2. RAMIPRIL [Concomitant]
     Indication: HYPERTENSION
     Dosage: 10 MG, UNK
     Route: 048
     Dates: start: 20070129, end: 20110613

REACTIONS (4)
  - CANDIDIASIS [None]
  - PRURITUS GENERALISED [None]
  - EYELID OEDEMA [None]
  - RASH [None]
